FAERS Safety Report 18096456 (Version 1)
Quarter: 2020Q3

REPORT INFORMATION
  Report Type: Spontaneous
  Country: IT (occurrence: IT)
  Receive Date: 20200731
  Receipt Date: 20200731
  Transmission Date: 20201103
  Serious: Yes (Other)
  Sender: FDA-Public Use
  Company Number: IT-AMGEN-ITASP2020122885

PATIENT
  Age: 66 Year

DRUGS (21)
  1. BEVACIZUMAB. [Suspect]
     Active Substance: BEVACIZUMAB
     Dosage: 54TH CYCLE OF IMMUNOTHERAPY
     Route: 065
     Dates: start: 20200407
  2. BEVACIZUMAB. [Suspect]
     Active Substance: BEVACIZUMAB
     Dosage: 55TH CYCLE OF IMMUNOTHERAPY
     Route: 065
     Dates: start: 20200421
  3. ALOVEX [Concomitant]
     Indication: STOMATITIS
     Dosage: UNK
     Dates: start: 20180423
  4. ZINC OXIDE. [Concomitant]
     Active Substance: ZINC OXIDE
     Dosage: UNK
     Dates: start: 20200212
  5. DEXCHLORPHENIRAMINE [Concomitant]
     Active Substance: DEXCHLORPHENIRAMINE
     Indication: PRURITUS
     Dosage: UNK
     Dates: start: 20190924
  6. LEVOTHYROXINE. [Concomitant]
     Active Substance: LEVOTHYROXINE
     Indication: HYPOTHYROIDISM
     Dosage: 100 MILLIGRAM, ON MON? WED?FRI; IN THE MORNING 1 175 MG TABLET ON TUE?THU?SAT?SUN. IN THE MORNING 1
  7. ATEZOLIZUMAB. [Suspect]
     Active Substance: ATEZOLIZUMAB
     Indication: RENAL CELL CARCINOMA
     Dosage: UNK
     Route: 065
     Dates: start: 20200325
  8. ATEZOLIZUMAB. [Suspect]
     Active Substance: ATEZOLIZUMAB
     Dosage: 55TH CYCLE OF IMMUNOTHERAPY
     Route: 065
     Dates: start: 20200421
  9. ATEZOLIZUMAB. [Suspect]
     Active Substance: ATEZOLIZUMAB
     Dosage: 57TH CYCLE OF IMMUNOTHERAPY
     Route: 065
     Dates: start: 20200527
  10. AMLODIPINE [Concomitant]
     Active Substance: AMLODIPINE BESYLATE
     Indication: HYPERTENSION
     Dosage: 5 MILLIGRAM
     Dates: start: 201711
  11. ALPRAZOLAM. [Concomitant]
     Active Substance: ALPRAZOLAM
     Indication: ANXIETY
     Dosage: 0.25 MILLIGRAM,1 TABLET  AS NECESSARY
     Dates: start: 20180827
  12. BEVACIZUMAB. [Suspect]
     Active Substance: BEVACIZUMAB
     Dosage: 56TH CYCLE OF IMMUNOTHERAPY
     Route: 065
     Dates: start: 20200513
  13. ATEZOLIZUMAB. [Suspect]
     Active Substance: ATEZOLIZUMAB
     Dosage: 56TH CYCLE OF IMMUNOTHERAPY
     Route: 065
     Dates: start: 20200513
  14. OXATOMIDE [Concomitant]
     Active Substance: OXATOMIDE
     Indication: PRURITUS
     Dosage: 30 MILLIGRAM, AS NECESSARY
     Route: 065
  15. EDOXABAN [Concomitant]
     Active Substance: EDOXABAN TOSYLATE
     Indication: PULMONARY EMBOLISM
     Dosage: 60 MILLIGRAM, QD
     Dates: start: 20180619
  16. CLOTRIMAZOLE. [Concomitant]
     Active Substance: CLOTRIMAZOLE
     Dosage: UNK
     Dates: start: 20200212
  17. ALOE VERA [Concomitant]
     Active Substance: ALOE VERA LEAF
     Indication: RASH
     Dosage: UNK
     Dates: start: 20200320
  18. BEVACIZUMAB. [Suspect]
     Active Substance: BEVACIZUMAB
     Indication: RENAL CELL CARCINOMA
     Dosage: UNK
     Route: 065
     Dates: start: 20200325
  19. BEVACIZUMAB. [Suspect]
     Active Substance: BEVACIZUMAB
     Dosage: 57TH CYCLE OF IMMUNOTHERAPY
     Route: 065
     Dates: start: 20200527
  20. ATEZOLIZUMAB. [Suspect]
     Active Substance: ATEZOLIZUMAB
     Dosage: 54TH CYCLE OF IMMUNOTHERAPY
     Route: 065
     Dates: start: 20200407
  21. LACTULOSE. [Concomitant]
     Active Substance: LACTULOSE
     Indication: CONSTIPATION
     Dosage: UNK
     Dates: start: 20180703

REACTIONS (1)
  - Hepatotoxicity [Unknown]
